FAERS Safety Report 26211740 (Version 1)
Quarter: 2025Q4

REPORT INFORMATION
  Report Type: Spontaneous
  Country: JP (occurrence: JP)
  Receive Date: 20251230
  Receipt Date: 20251230
  Transmission Date: 20260117
  Serious: Yes (Other)
  Sender: JOHNSON AND JOHNSON
  Company Number: JP-TANABE_PHARMA-MTPC2025-0022885

PATIENT
  Age: 63 Year
  Sex: Female

DRUGS (1)
  1. REMICADE [Suspect]
     Active Substance: INFLIXIMAB
     Indication: Colitis
     Dosage: UNK
     Route: 041

REACTIONS (4)
  - Cytomegalovirus enterocolitis [Unknown]
  - Cytomegalovirus gastrointestinal ulcer [Unknown]
  - Colitis [Unknown]
  - Off label use [Unknown]
